FAERS Safety Report 23882026 (Version 1)
Quarter: 2024Q2

REPORT INFORMATION
  Report Type: Spontaneous
  Country: US (occurrence: US)
  Receive Date: 20240521
  Receipt Date: 20240521
  Transmission Date: 20240715
  Serious: No
  Sender: FDA-Public Use
  Company Number: US-AMGEN-USASP2024099620

PATIENT
  Sex: Female

DRUGS (1)
  1. ARANESP [Suspect]
     Active Substance: DARBEPOETIN ALFA
     Indication: Chronic kidney disease
     Dosage: 25 MICROGRAM/0.42 ML, Q2WK
     Route: 058

REACTIONS (2)
  - Product storage error [Unknown]
  - Circumstance or information capable of leading to medication error [Unknown]
